FAERS Safety Report 4829683-9 (Version None)
Quarter: 2005Q4

REPORT INFORMATION
  Report Type: 
  Country: None (occurrence: None)
  Receive Date: 20051116
  Receipt Date: 20051107
  Transmission Date: 20060501
  Serious: Yes (Hospitalization, Other)
  Sender: FDA-Public Use
  Company Number: US-MERCK-0511USA01254

PATIENT
  Age: 46 Year
  Sex: Female
  Weight: 81 kg

DRUGS (19)
  1. VIOXX [Suspect]
     Indication: RHEUMATOID ARTHRITIS
     Route: 048
     Dates: start: 19990601, end: 20011001
  2. VIOXX [Suspect]
     Route: 048
     Dates: start: 20011001, end: 20031101
  3. OXYCONTIN [Concomitant]
     Indication: RESTLESS LEGS SYNDROME
     Route: 065
  4. EFFEXOR [Concomitant]
     Indication: MENOPAUSE
     Route: 065
  5. EFFEXOR [Concomitant]
     Indication: MOOD SWINGS
     Route: 065
  6. SEMPREX-D [Concomitant]
     Indication: HYPERSENSITIVITY
     Route: 065
  7. SEMPREX-D [Concomitant]
     Indication: ASTHMA
     Route: 065
  8. NEXIUM [Concomitant]
     Route: 065
  9. VERAPAMIL MSD LP [Concomitant]
     Indication: MIGRAINE
     Route: 048
  10. ARMOUR THYROID TABLETS [Concomitant]
     Indication: HYPOTHYROIDISM
     Route: 065
  11. PREMPRO [Concomitant]
     Indication: MENOPAUSE
     Route: 065
     Dates: start: 20020101, end: 20050401
  12. SINGULAIR [Concomitant]
     Indication: ASTHMA
     Route: 048
  13. SINGULAIR [Concomitant]
     Indication: HYPERSENSITIVITY
     Route: 048
  14. AMITRIPTYLINE HYDROCHLORIDE [Concomitant]
     Indication: INSOMNIA
     Route: 065
  15. HYDROCODONE HYDROCHLORIDE [Concomitant]
     Indication: PAIN
     Route: 065
  16. QUININE SULFATE [Concomitant]
     Indication: RESTLESS LEGS SYNDROME
     Route: 065
  17. DURADRIN [Concomitant]
     Indication: MIGRAINE
     Route: 065
  18. PROVENTIL [Concomitant]
     Indication: ASTHMA
     Route: 065
  19. VICON FORTE [Concomitant]
     Route: 065

REACTIONS (17)
  - ACQUIRED OESOPHAGEAL WEB [None]
  - BACK PAIN [None]
  - BLOOD CHOLESTEROL INCREASED [None]
  - BREAST CANCER [None]
  - CARDIAC FAILURE CONGESTIVE [None]
  - CHEST PAIN [None]
  - CHRONIC OBSTRUCTIVE PULMONARY DISEASE [None]
  - DYSPEPSIA [None]
  - DYSPNOEA [None]
  - GASTROOESOPHAGEAL REFLUX DISEASE [None]
  - HYPERTENSION [None]
  - HYPERTENSIVE HEART DISEASE [None]
  - INSOMNIA [None]
  - IRRITABLE BOWEL SYNDROME [None]
  - LUNG DISORDER [None]
  - MOOD SWINGS [None]
  - MYOCARDIAL INFARCTION [None]
